FAERS Safety Report 17755296 (Version 1)
Quarter: 2020Q2

REPORT INFORMATION
  Report Type: Spontaneous
  Country: US (occurrence: US)
  Receive Date: 20200507
  Receipt Date: 20200507
  Transmission Date: 20200714
  Serious: Yes (Other)
  Sender: FDA-Public Use
  Company Number: US-TEVA-2020-US-1233211

PATIENT
  Sex: Female

DRUGS (2)
  1. AUSTEDO [Suspect]
     Active Substance: DEUTETRABENAZINE
     Indication: HUNTINGTON^S DISEASE
     Dosage: 12 MILLIGRAM DAILY; FIRST SHIPPED: 20-FEB-2020
     Route: 048
  2. FORTEO [Concomitant]
     Active Substance: TERIPARATIDE

REACTIONS (6)
  - Bone disorder [Unknown]
  - Thrombosis [Unknown]
  - Depressive symptom [Unknown]
  - Multiple fractures [Unknown]
  - Patella fracture [Unknown]
  - Crying [Unknown]
